FAERS Safety Report 10233244 (Version 3)
Quarter: 2015Q1

REPORT INFORMATION
  Report Type: Spontaneous
  Country: US (occurrence: US)
  Receive Date: 20140612
  Receipt Date: 20150123
  Transmission Date: 20150720
  Serious: Yes (Hospitalization)
  Sender: FDA-Public Use
  Company Number: US-BAYER-2014-086250

PATIENT
  Age: 31 Year
  Sex: Female
  Weight: 54.42 kg

DRUGS (8)
  1. VITAMIN C [Concomitant]
     Active Substance: ASCORBIC ACID
     Route: 048
  2. FLAGYL [Concomitant]
     Active Substance: METRONIDAZOLE\METRONIDAZOLE HYDROCHLORIDE
     Indication: BACTERIAL VAGINOSIS
     Route: 048
  3. FISH OIL [Concomitant]
     Active Substance: FISH OIL
     Route: 048
  4. MACROBID [Concomitant]
     Active Substance: NITROFURANTOIN\NITROFURANTOIN MONOHYDRATE
     Indication: BACTERIAL VAGINOSIS
  5. MIRENA [Suspect]
     Active Substance: LEVONORGESTREL
     Dosage: 20 MCG/24HR, CONT
     Route: 015
     Dates: start: 20110810, end: 20130102
  6. LORATADINE. [Concomitant]
     Active Substance: LORATADINE
     Route: 048
  7. PRENATAL VITAMINS [Concomitant]
     Active Substance: VITAMINS
     Route: 048
  8. CLINDAMYCIN [Concomitant]
     Active Substance: CLINDAMYCIN\CLINDAMYCIN PHOSPHATE
     Indication: BACTERIAL VAGINOSIS
     Route: 067

REACTIONS (7)
  - Uterine perforation [None]
  - Device issue [None]
  - Device breakage [None]
  - Back pain [None]
  - Abdominal pain [None]
  - Scar [None]
  - Injury [None]

NARRATIVE: CASE EVENT DATE: 201112
